FAERS Safety Report 9632206 (Version 3)
Quarter: 2013Q4

REPORT INFORMATION
  Report Type: Spontaneous
  Country: US (occurrence: None)
  Receive Date: 20131016
  Receipt Date: 20131209
  Transmission Date: 20140711
  Serious: Yes (Other)
  Sender: FDA-Public Use
  Company Number: AE-SPE-2013-026

PATIENT
  Age: 69 Year
  Sex: Male

DRUGS (4)
  1. MEIACT [Suspect]
     Route: 048
     Dates: start: 20130913, end: 20130916
  2. CALONAL (ACETAMINOPHEN) [Suspect]
     Route: 048
     Dates: start: 20130911, end: 20130919
  3. PL [Suspect]
     Route: 048
     Dates: start: 20130911, end: 20130913
  4. EURODIN [Suspect]
     Route: 048
     Dates: start: 20130916, end: 20130918

REACTIONS (1)
  - Agranulocytosis [None]
